FAERS Safety Report 8143511-8 (Version None)
Quarter: 2012Q1

REPORT INFORMATION
  Report Type: 
  Country: None (occurrence: None)
  Receive Date: 20120217
  Receipt Date: 20120207
  Transmission Date: 20120608
  Serious: Yes (Other)
  Sender: FDA-Public Use
  Company Number: US-VIROPHARMA INCORPORATED-20111227CINRY2535

PATIENT
  Sex: Female

DRUGS (2)
  1. CINRYZE [Suspect]
     Indication: HEREDITARY ANGIOEDEMA
     Dates: start: 20110401
  2. CINRYZE [Suspect]

REACTIONS (2)
  - SPLENIC MARGINAL ZONE LYMPHOMA [None]
  - POST PROCEDURAL SWELLING [None]
